FAERS Safety Report 8223793-4 (Version None)
Quarter: 2012Q1

REPORT INFORMATION
  Report Type: 
  Country: None (occurrence: None)
  Receive Date: 20120321
  Receipt Date: 20120321
  Transmission Date: 20120608
  Serious: Yes (Life-Threatening, Hospitalization)
  Sender: FDA-Public Use
  Company Number: None

PATIENT
  Age: 72 Year
  Sex: Male
  Weight: 94.1 kg

DRUGS (10)
  1. PLAVIX [Concomitant]
  2. AMLODIPINE [Concomitant]
  3. HYDROCHLOROTHIAZIDE [Concomitant]
  4. LOVASTATIN [Concomitant]
  5. FERAHEME [Suspect]
     Indication: IRON DEFICIENCY ANAEMIA
  6. FERAHEME [Suspect]
     Indication: NEPHROGENIC ANAEMIA
  7. ATENOLOL [Concomitant]
  8. ASPIRIN [Concomitant]
  9. SERTRALINE HYDROCHLORIDE [Concomitant]
  10. TERAZOSIN HCL [Concomitant]

REACTIONS (8)
  - PRURITUS [None]
  - FEELING COLD [None]
  - DYSARTHRIA [None]
  - PAIN IN EXTREMITY [None]
  - CHEST PAIN [None]
  - BACK PAIN [None]
  - DYSPNOEA [None]
  - PNEUMONIA [None]
